FAERS Safety Report 16306443 (Version 1)
Quarter: 2019Q2

REPORT INFORMATION
  Report Type: Spontaneous
  Country: GB (occurrence: GB)
  Receive Date: 20190513
  Receipt Date: 20190513
  Transmission Date: 20190711
  Serious: Yes (Disabling)
  Sender: FDA-Public Use
  Company Number: GB-MYLANLABS-2019M1044555

PATIENT
  Age: 70 Year
  Sex: Female

DRUGS (3)
  1. FONDAPARINUX [Concomitant]
     Active Substance: FONDAPARINUX
     Indication: DEEP VEIN THROMBOSIS
     Dosage: 7.5 MILLIGRAM, QD
  2. FLUCLOXACILLIN [Concomitant]
     Active Substance: FLUCLOXACILLIN
     Dosage: FOR 6 WEEKS, AT THE TIME OF REPORTING PATIENT WAS ON DAY 25 OF TREATMENT.
     Route: 042
     Dates: start: 20181019
  3. RIFAMPICIN [Suspect]
     Active Substance: RIFAMPIN
     Indication: CELLULITIS
     Dosage: 900 MILLIGRAM, QD
     Dates: start: 20181109

REACTIONS (1)
  - Blister [Recovered/Resolved]
